FAERS Safety Report 5774378-0 (Version None)
Quarter: 2008Q2

REPORT INFORMATION
  Report Type: 
  Country: None (occurrence: None)
  Receive Date: 20080616
  Receipt Date: 20080612
  Transmission Date: 20081010
  Serious: Yes (Death, Other)
  Sender: FDA-Public Use
  Company Number: US-BAXTER-2008BH006195

PATIENT
  Sex: Female

DRUGS (2)
  1. HEPARIN SODIUM INJECTION [Suspect]
     Indication: VASCULAR GRAFT
     Dosage: DOSE UNIT:UNKNOWN
     Route: 065
     Dates: start: 20060601
  2. HEPARIN SODIUM INJECTION [Suspect]
     Indication: MYOCARDIAL INFARCTION
     Dosage: DOSE UNIT:UNKNOWN
     Route: 065
     Dates: start: 20060601

REACTIONS (4)
  - CYANOSIS [None]
  - DEEP VEIN THROMBOSIS [None]
  - HEPARIN-INDUCED THROMBOCYTOPENIA [None]
  - SOFT TISSUE NECROSIS [None]
